FAERS Safety Report 12069371 (Version 2)
Quarter: 2016Q1

REPORT INFORMATION
  Report Type: Report from Study
  Country: US (occurrence: US)
  Receive Date: 20160211
  Receipt Date: 20160330
  Transmission Date: 20160526
  Serious: No
  Sender: FDA-Public Use
  Company Number: PHEH2016US002384

PATIENT
  Age: 51 Year
  Sex: Female
  Weight: 75 kg

DRUGS (6)
  1. COSENTYX [Suspect]
     Active Substance: SECUKINUMAB
     Indication: PSORIASIS
     Dosage: 300 MG, QMO
     Route: 058
     Dates: start: 201509
  2. COSENTYX [Suspect]
     Active Substance: SECUKINUMAB
     Indication: PSORIATIC ARTHROPATHY
  3. CALCIUM [Concomitant]
     Active Substance: CALCIUM
     Indication: PRODUCT USED FOR UNKNOWN INDICATION
     Route: 065
  4. ASPIRIN. [Concomitant]
     Active Substance: ASPIRIN
     Indication: PRODUCT USED FOR UNKNOWN INDICATION
     Route: 065
  5. VITAMIN D [Concomitant]
     Active Substance: CHOLECALCIFEROL
     Indication: PRODUCT USED FOR UNKNOWN INDICATION
     Route: 065
  6. FISH OIL [Concomitant]
     Active Substance: FISH OIL
     Indication: PRODUCT USED FOR UNKNOWN INDICATION
     Route: 065

REACTIONS (3)
  - Staphylococcal infection [Recovered/Resolved]
  - Malaise [Unknown]
  - Psoriasis [Unknown]

NARRATIVE: CASE EVENT DATE: 201509
